FAERS Safety Report 15901152 (Version 1)
Quarter: 2019Q1

REPORT INFORMATION
  Report Type: Report from Study
  Country: US (occurrence: US)
  Receive Date: 20190201
  Receipt Date: 20190201
  Transmission Date: 20190417
  Serious: Yes (Other)
  Sender: FDA-Public Use
  Company Number: US-ALLERGAN-1904543US

PATIENT
  Age: 77 Year
  Sex: Female

DRUGS (1)
  1. CYCLOSPORINE 0.5MG/ML SOL (9054XMD) [Suspect]
     Active Substance: CYCLOSPORINE
     Indication: PRODUCT USED FOR UNKNOWN INDICATION
     Dosage: UNK
     Route: 047

REACTIONS (3)
  - Product dose omission [Unknown]
  - Visual impairment [Unknown]
  - Eye disorder [Unknown]
